FAERS Safety Report 22127906 (Version 1)
Quarter: 2023Q1

REPORT INFORMATION
  Report Type: Report from Study
  Country: US (occurrence: US)
  Receive Date: 20230323
  Receipt Date: 20230323
  Transmission Date: 20230417
  Serious: Yes (Other)
  Sender: FDA-Public Use
  Company Number: US-ABBVIE-4698443

PATIENT
  Sex: Male

DRUGS (1)
  1. HUMIRA [Suspect]
     Active Substance: ADALIMUMAB
     Indication: Product used for unknown indication
     Route: 058
     Dates: start: 20230303

REACTIONS (3)
  - Gastric haemorrhage [Not Recovered/Not Resolved]
  - Device issue [Unknown]
  - Abdominal pain upper [Not Recovered/Not Resolved]
